FAERS Safety Report 11238003 (Version 1)
Quarter: 2015Q3

REPORT INFORMATION
  Report Type: Report from Study
  Country: NL (occurrence: NL)
  Receive Date: 20150703
  Receipt Date: 20150703
  Transmission Date: 20151125
  Serious: Yes (Hospitalization, Other)
  Sender: FDA-Public Use
  Company Number: NL-AMGEN-NLDSL2015064522

PATIENT
  Age: 90 Year
  Sex: Female

DRUGS (9)
  1. ANASTROZOL [Concomitant]
     Active Substance: ANASTROZOLE
     Dosage: 1 MG, QD
     Route: 048
     Dates: start: 20150617
  2. VITAMINE B COMPLEX [Concomitant]
     Dosage: UNK UNK, QD
     Route: 048
     Dates: start: 20150620
  3. CALCIUM CARBONATE W/COLECALCIFEROL [Concomitant]
     Active Substance: CALCIUM CARBONATE\CHOLECALCIFEROL
     Dosage: 1.25G/440IE, QD
     Dates: start: 20150624
  4. CANDESARTAN [Concomitant]
     Active Substance: CANDESARTAN
     Dosage: 8 MG, QD
     Route: 048
     Dates: start: 20140106
  5. SERTRALINE                         /01011402/ [Concomitant]
     Active Substance: SERTRALINE HYDROCHLORIDE
     Dosage: 50 MG, QD
     Route: 048
     Dates: start: 20140106
  6. XGEVA [Suspect]
     Active Substance: DENOSUMAB
     Indication: PRODUCT USED FOR UNKNOWN INDICATION
     Dosage: 120 MG, Q4WK
     Route: 058
     Dates: start: 20140129
  7. LORMETAZEPAM [Concomitant]
     Active Substance: LORMETAZEPAM
     Dosage: 1 MG, QD
     Route: 048
     Dates: start: 20150617
  8. FERROFUMARAAT [Concomitant]
     Dosage: 200 MG, QD
     Route: 048
     Dates: start: 20150617
  9. OMEPRAZOL                          /00661201/ [Concomitant]
     Active Substance: OMEPRAZOLE
     Dosage: 40 MG, QD
     Route: 048
     Dates: start: 20150617

REACTIONS (4)
  - Gastrointestinal disorder [Unknown]
  - Anaemia [Unknown]
  - Anal haemorrhage [Unknown]
  - Colon cancer [Unknown]

NARRATIVE: CASE EVENT DATE: 20150615
